FAERS Safety Report 9438162 (Version 1)
Quarter: 2013Q3

REPORT INFORMATION
  Report Type: Spontaneous
  Country: US (occurrence: US)
  Receive Date: 20130802
  Receipt Date: 20130802
  Transmission Date: 20140515
  Serious: No
  Sender: FDA-Public Use
  Company Number: US-BRISTOL-MYERS SQUIBB COMPANY-16937237

PATIENT
  Age: 65 Year
  Sex: Female

DRUGS (2)
  1. COUMADIN [Suspect]
     Dates: start: 201205
  2. LANTUS [Suspect]
     Indication: TYPE 2 DIABETES MELLITUS
     Dosage: LANTUS SOLOSTAR?1DF:24 UNITS.
     Route: 058
     Dates: start: 201205

REACTIONS (2)
  - Contusion [Unknown]
  - Ocular hyperaemia [Unknown]
